FAERS Safety Report 10536822 (Version 1)
Quarter: 2014Q4

REPORT INFORMATION
  Report Type: Spontaneous
  Country: FR (occurrence: FR)
  Receive Date: 20141022
  Receipt Date: 20141022
  Transmission Date: 20150529
  Serious: Yes (Hospitalization, Other)
  Sender: FDA-Public Use
  Company Number: FR-ASTRAZENECA-2014SE78970

PATIENT
  Age: 9681 Day
  Sex: Female

DRUGS (4)
  1. TRINORDIOL [Concomitant]
     Active Substance: ETHINYL ESTRADIOL\LEVONORGESTREL
     Route: 048
  2. MOPRAL [Suspect]
     Active Substance: OMEPRAZOLE SODIUM
     Route: 048
     Dates: start: 20140114, end: 20140119
  3. AUGMENTIN [Suspect]
     Active Substance: AMOXICILLIN\CLAVULANATE POTASSIUM
     Route: 048
     Dates: start: 20140113, end: 20140115
  4. KETOPROFENE [Suspect]
     Active Substance: KETOPROFEN
     Route: 048
     Dates: start: 20140114, end: 20140119

REACTIONS (8)
  - Procalcitonin increased [Unknown]
  - Haemoglobin decreased [Unknown]
  - Acute interstitial pneumonitis [Unknown]
  - Neutrophil count increased [Recovered/Resolved]
  - Acute generalised exanthematous pustulosis [Recovered/Resolved]
  - Acute respiratory failure [Recovered/Resolved with Sequelae]
  - Hyperpyrexia [Unknown]
  - Obstructive airways disorder [Unknown]

NARRATIVE: CASE EVENT DATE: 20140119
